FAERS Safety Report 7671310-X (Version None)
Quarter: 2011Q3

REPORT INFORMATION
  Report Type: 
  Country: None (occurrence: None)
  Receive Date: 20110808
  Receipt Date: 20110808
  Transmission Date: 20111222
  Serious: Yes (Death)
  Sender: FDA-Public Use
  Company Number: None

PATIENT
  Age: 84 Year
  Sex: Female
  Weight: 65.7716 kg

DRUGS (1)
  1. PRADAXA [Suspect]
     Indication: ATRIAL FIBRILLATION
     Dosage: PRADAXA BID PO
     Route: 048
     Dates: start: 20110301, end: 20110701

REACTIONS (2)
  - RENAL IMPAIRMENT [None]
  - HAEMORRHAGE [None]
